FAERS Safety Report 16289225 (Version 1)
Quarter: 2019Q2

REPORT INFORMATION
  Report Type: Spontaneous
  Country: PL (occurrence: PL)
  Receive Date: 20190509
  Receipt Date: 20190509
  Transmission Date: 20190711
  Serious: Yes (Hospitalization)
  Sender: FDA-Public Use
  Company Number: PL-ACCORD-126548

PATIENT
  Age: 38 Year
  Sex: Male
  Weight: 104 kg

DRUGS (4)
  1. VINCRISTINE [Suspect]
     Active Substance: VINCRISTINE
     Indication: TESTIS CANCER
     Route: 042
     Dates: start: 20160813, end: 20160817
  2. MESNA. [Concomitant]
     Active Substance: MESNA
     Indication: TESTIS CANCER
     Route: 042
     Dates: start: 20160813, end: 20160817
  3. CISPLATIN. [Suspect]
     Active Substance: CISPLATIN
     Indication: TESTIS CANCER
     Route: 042
     Dates: start: 20160813, end: 20160817
  4. IFOSFAMIDE. [Suspect]
     Active Substance: IFOSFAMIDE
     Indication: TESTIS CANCER
     Route: 042
     Dates: start: 20160813, end: 20160817

REACTIONS (3)
  - Hepatotoxicity [Recovering/Resolving]
  - Proteinuria [Recovering/Resolving]
  - Haematuria [Recovering/Resolving]

NARRATIVE: CASE EVENT DATE: 20160818
